FAERS Safety Report 6171916-3 (Version None)
Quarter: 2009Q2

REPORT INFORMATION
  Report Type: 
  Country: None (occurrence: None)
  Receive Date: 20090429
  Receipt Date: 20090416
  Transmission Date: 20091009
  Serious: Yes (Hospitalization)
  Sender: FDA-Public Use
  Company Number: CA-MERCK-0904CAN00092

PATIENT
  Age: 69 Year
  Sex: Male

DRUGS (12)
  1. PRINIVIL [Suspect]
     Route: 048
  2. WARFARIN SODIUM [Suspect]
     Indication: ANTICOAGULANT THERAPY
     Route: 065
  3. ASPIRIN [Suspect]
     Route: 065
  4. CLOPIDOGREL BISULFATE [Suspect]
     Route: 065
  5. AMLODIPINE [Suspect]
     Route: 065
  6. LANSOPRAZOLE [Suspect]
     Route: 065
  7. LORAZEPAM [Concomitant]
     Route: 065
  8. ALBUTEROL [Concomitant]
     Route: 065
  9. ATORVASTATIN [Concomitant]
     Route: 065
  10. VITAMINS (UNSPECIFIED) [Concomitant]
     Route: 065
  11. FERROUS GLUCONATE [Concomitant]
     Route: 065
  12. ZOPICLONE [Concomitant]
     Route: 065

REACTIONS (3)
  - GASTROINTESTINAL HAEMORRHAGE [None]
  - NEPHROPATHY [None]
  - RENAL FAILURE [None]
